FAERS Safety Report 6884385-2 (Version None)
Quarter: 2010Q3

REPORT INFORMATION
  Report Type: 
  Country: None (occurrence: None)
  Receive Date: 20100729
  Receipt Date: 20070709
  Transmission Date: 20110219
  Serious: No
  Sender: FDA-Public Use
  Company Number: US-PFIZER INC-2007056703

PATIENT
  Sex: Female
  Weight: 72.2 kg

DRUGS (3)
  1. CELEBREX [Suspect]
     Indication: OSTEOPOROSIS
  2. CELEBREX [Suspect]
     Indication: ARTHRITIS
  3. DRUG, UNSPECIFIED [Concomitant]

REACTIONS (1)
  - RASH PAPULAR [None]
